FAERS Safety Report 5169830-5 (Version None)
Quarter: 2006Q4

REPORT INFORMATION
  Report Type: 
  Country: None (occurrence: None)
  Receive Date: 20061212
  Receipt Date: 20061127
  Transmission Date: 20070319
  Serious: Yes (Hospitalization)
  Sender: FDA-Public Use
  Company Number: US-AMGEN-US201532

PATIENT
  Sex: Male

DRUGS (1)
  1. ENBREL [Suspect]
     Indication: PSORIASIS
     Route: 058
     Dates: start: 20040812

REACTIONS (4)
  - INFLUENZA [None]
  - STAPHYLOCOCCAL INFECTION [None]
  - THERMAL BURN [None]
  - URINARY TRACT INFECTION [None]
